FAERS Safety Report 7397075-7 (Version None)
Quarter: 2011Q2

REPORT INFORMATION
  Report Type: 
  Country: None (occurrence: None)
  Receive Date: 20110406
  Receipt Date: 20110329
  Transmission Date: 20111010
  Serious: Yes (Hospitalization)
  Sender: FDA-Public Use
  Company Number: A0773220A

PATIENT
  Age: 53 Year
  Sex: Female
  Weight: 65.9 kg

DRUGS (17)
  1. GLUCOPHAGE [Concomitant]
  2. METFORMIN [Concomitant]
  3. HYDROCHLOROTHIAZIDE [Concomitant]
  4. TRAMADOL [Concomitant]
  5. LORATADINE [Concomitant]
  6. AMITRIPTYLINE [Concomitant]
  7. AVANDIA [Suspect]
     Indication: DIABETES MELLITUS
     Dosage: 4MG TWICE PER DAY
     Route: 048
     Dates: start: 20040601, end: 20070601
  8. NOVOLOG [Concomitant]
  9. GLUCOTROL [Concomitant]
  10. PRINIVIL [Concomitant]
  11. ZESTRIL [Concomitant]
  12. ACTOS [Concomitant]
  13. TRAZODONE HCL [Concomitant]
  14. GLYBURIDE [Concomitant]
  15. LISINOPRIL [Concomitant]
  16. ZYRTEC [Concomitant]
  17. HUMALOG [Concomitant]

REACTIONS (5)
  - AORTIC VALVE INCOMPETENCE [None]
  - MYOCARDIAL INFARCTION [None]
  - MITRAL VALVE INCOMPETENCE [None]
  - CARDIAC FAILURE CONGESTIVE [None]
  - PULMONARY HYPERTENSION [None]
